FAERS Safety Report 5495584-9 (Version None)
Quarter: 2007Q4

REPORT INFORMATION
  Report Type: 
  Country: None (occurrence: None)
  Receive Date: 20071025
  Receipt Date: 20071018
  Transmission Date: 20080405
  Serious: Yes (Other)
  Sender: FDA-Public Use
  Company Number: PHNU2007DE03222

PATIENT
  Age: 62 Year
  Sex: Female
  Weight: 59 kg

DRUGS (3)
  1. FEMARA [Suspect]
     Indication: BREAST CANCER
     Dosage: 2.5 MG, QD
     Route: 048
     Dates: start: 20070821, end: 20070924
  2. TAMOXIFEN CITRATE [Concomitant]
     Indication: BREAST CANCER
     Route: 065
     Dates: start: 20060801, end: 20070801
  3. PANTOVIGAR [Concomitant]
     Indication: ALOPECIA
     Dates: start: 20070903, end: 20070921

REACTIONS (3)
  - ANGIOEDEMA [None]
  - HYSTERECTOMY [None]
  - URTICARIA [None]
